FAERS Safety Report 6846409-8 (Version None)
Quarter: 2010Q3

REPORT INFORMATION
  Report Type: 
  Country: None (occurrence: None)
  Receive Date: 20100715
  Receipt Date: 20080301
  Transmission Date: 20110219
  Serious: Yes (Hospitalization, Other)
  Sender: FDA-Public Use
  Company Number: US-PFIZER INC-2007077913

PATIENT
  Sex: Male
  Weight: 99.8 kg

DRUGS (8)
  1. CHANTIX [Suspect]
     Indication: SMOKING CESSATION THERAPY
     Route: 048
     Dates: start: 20070901, end: 20070901
  2. THYROID TAB [Concomitant]
  3. LANTUS [Concomitant]
  4. INSULIN GLULISINE [Concomitant]
  5. ACETYLSALICYLIC ACID [Concomitant]
  6. PLETAL [Concomitant]
  7. SYNTHROID [Concomitant]
  8. STATINS [Concomitant]

REACTIONS (6)
  - CHEST PAIN [None]
  - DYSPEPSIA [None]
  - DYSPNOEA [None]
  - OESOPHAGEAL ULCER [None]
  - PRODUCTIVE COUGH [None]
  - SLEEP DISORDER [None]
